FAERS Safety Report 5122626-2 (Version None)
Quarter: 2006Q4

REPORT INFORMATION
  Report Type: 
  Country: None (occurrence: None)
  Receive Date: 20061004
  Receipt Date: 20060926
  Transmission Date: 20070319
  Serious: No
  Sender: FDA-Public Use
  Company Number: 2006JP001906

PATIENT
  Age: 86 Year
  Sex: Female
  Weight: 42 kg

DRUGS (8)
  1. VESICARE [Suspect]
     Indication: HYPERTONIC BLADDER
     Dosage: 5 MG, UID/QD, ORAL; 2.5 MG, D, ORAL
     Route: 048
     Dates: start: 20060610, end: 20060611
  2. VESICARE [Suspect]
     Indication: HYPERTONIC BLADDER
     Dosage: 5 MG, UID/QD, ORAL; 2.5 MG, D, ORAL
     Route: 048
     Dates: start: 20060612, end: 20060624
  3. GASTER D TABLET [Concomitant]
  4. AMLODIN (AMLODIPINE BESILATE) TABLET [Concomitant]
  5. ALPRAZOLAM [Concomitant]
  6. ULCERLMIN (SUCRALFATE) POWDER [Concomitant]
  7. LAXOBERON (SODIUM PICOSULFATE) TABLET [Concomitant]
  8. DAIKENTYUTO (HERBAL EXTRACT NOS) [Concomitant]

REACTIONS (3)
  - ANOREXIA [None]
  - GASTRITIS [None]
  - ILEUS PARALYTIC [None]
